FAERS Safety Report 17316725 (Version 1)
Quarter: 2020Q1

REPORT INFORMATION
  Report Type: Spontaneous
  Country: US (occurrence: US)
  Receive Date: 20200124
  Receipt Date: 20200124
  Transmission Date: 20200409
  Serious: Yes (Other)
  Sender: FDA-Public Use
  Company Number: US-ASTRAZENECA-2020SE10209

PATIENT
  Sex: Male

DRUGS (23)
  1. SEROQUEL [Suspect]
     Active Substance: QUETIAPINE FUMARATE
     Indication: BIPOLAR I DISORDER
     Route: 048
  2. SUBOXONE [Suspect]
     Active Substance: BUPRENORPHINE HYDROCHLORIDE\NALOXONE HYDROCHLORIDE
     Route: 065
  3. SEROQUEL [Suspect]
     Active Substance: QUETIAPINE FUMARATE
     Indication: BIPOLAR I DISORDER
     Route: 048
  4. RITALIN [Concomitant]
     Active Substance: METHYLPHENIDATE HYDROCHLORIDE
  5. CLONIDINE. [Concomitant]
     Active Substance: CLONIDINE
     Indication: HYPERTENSION
  6. HCTZ [Concomitant]
     Active Substance: HYDROCHLOROTHIAZIDE
     Indication: HYPERTENSION
  7. KLONOPIN [Concomitant]
     Active Substance: CLONAZEPAM
     Indication: NEURALGIA
  8. LISINOPRIL. [Concomitant]
     Active Substance: LISINOPRIL
     Indication: HYPERTENSION
  9. LITHIUM. [Concomitant]
     Active Substance: LITHIUM
  10. SEROQUEL [Suspect]
     Active Substance: QUETIAPINE FUMARATE
     Indication: SCHIZOPHRENIA
     Route: 048
  11. LORTAB [Suspect]
     Active Substance: ACETAMINOPHEN\HYDROCODONE BITARTRATE
     Route: 065
  12. DEPAKOTE [Suspect]
     Active Substance: DIVALPROEX SODIUM
     Route: 065
  13. RANITIDINE ZANTAC [Concomitant]
  14. SEROQUEL [Suspect]
     Active Substance: QUETIAPINE FUMARATE
     Indication: BIPOLAR I DISORDER
     Route: 048
  15. XANAX [Concomitant]
     Active Substance: ALPRAZOLAM
     Dosage: 2.0MG UNKNOWN
  16. NEURONTIN [Concomitant]
     Active Substance: GABAPENTIN
     Indication: NEUROPATHY PERIPHERAL
  17. ZANAFLEX TIZANIDINE [Concomitant]
     Indication: MUSCLE RELAXANT THERAPY
  18. SEROQUEL [Suspect]
     Active Substance: QUETIAPINE FUMARATE
     Indication: SCHIZOPHRENIA
     Route: 048
  19. SEROQUEL [Suspect]
     Active Substance: QUETIAPINE FUMARATE
     Indication: SCHIZOPHRENIA
     Route: 048
  20. SEROQUEL [Suspect]
     Active Substance: QUETIAPINE FUMARATE
     Indication: BIPOLAR I DISORDER
     Route: 048
  21. SEROQUEL [Suspect]
     Active Substance: QUETIAPINE FUMARATE
     Indication: SCHIZOPHRENIA
     Route: 048
  22. DEPAKOTE [Suspect]
     Active Substance: DIVALPROEX SODIUM
     Route: 065
  23. LAMICTAL [Concomitant]
     Active Substance: LAMOTRIGINE

REACTIONS (25)
  - Insomnia [Unknown]
  - Feeling abnormal [Unknown]
  - Micturition disorder [Not Recovered/Not Resolved]
  - Penis disorder [Not Recovered/Not Resolved]
  - Cerebrovascular accident [Unknown]
  - Panic attack [Not Recovered/Not Resolved]
  - Vitreous floaters [Unknown]
  - Oral discomfort [Unknown]
  - Vomiting [Unknown]
  - Eye disorder [Unknown]
  - Peripheral coldness [Not Recovered/Not Resolved]
  - Arthralgia [Unknown]
  - Blood pressure increased [Unknown]
  - Tinnitus [Not Recovered/Not Resolved]
  - Neuropathy peripheral [Not Recovered/Not Resolved]
  - Schizoaffective disorder bipolar type [Unknown]
  - Limb discomfort [Not Recovered/Not Resolved]
  - Dry eye [Unknown]
  - Homicidal ideation [Unknown]
  - Visual impairment [Not Recovered/Not Resolved]
  - Degenerative bone disease [Not Recovered/Not Resolved]
  - Intervertebral disc protrusion [Unknown]
  - Screaming [Unknown]
  - Hallucination, auditory [Not Recovered/Not Resolved]
  - Cataract [Unknown]
